FAERS Safety Report 8591370-1 (Version None)
Quarter: 2012Q3

REPORT INFORMATION
  Report Type: 
  Country: None (occurrence: None)
  Receive Date: 20120814
  Receipt Date: 20120809
  Transmission Date: 20120928
  Serious: No
  Sender: FDA-Public Use
  Company Number: US-B.I. PHARMACEUTICALS,INC./RIDGEFIELD-2012-BP-18870BP

PATIENT
  Sex: Male

DRUGS (1)
  1. SPIRIVA [Suspect]
     Indication: RADIATION PNEUMONITIS
     Dosage: 18 MCG
     Route: 055
     Dates: start: 20120808, end: 20120809

REACTIONS (5)
  - CONDITION AGGRAVATED [None]
  - EYE PAIN [None]
  - DIZZINESS [None]
  - VISION BLURRED [None]
  - DYSPNOEA [None]
